FAERS Safety Report 14755492 (Version 1)
Quarter: 2018Q2

REPORT INFORMATION
  Report Type: Spontaneous
  Country: AT (occurrence: AT)
  Receive Date: 20180413
  Receipt Date: 20180413
  Transmission Date: 20180711
  Serious: Yes (Hospitalization, Other)
  Sender: FDA-Public Use
  Company Number: AT-B.I. PHARMACEUTICALS,INC./RIDGEFIELD-2018-BI-017537

PATIENT
  Sex: Female

DRUGS (1)
  1. PRADAXA [Suspect]
     Active Substance: DABIGATRAN ETEXILATE MESYLATE
     Indication: ATRIAL FIBRILLATION
     Route: 065

REACTIONS (8)
  - Atrial fibrillation [Unknown]
  - Haemorrhage [Unknown]
  - Agitation [Unknown]
  - Femur fracture [Unknown]
  - Vomiting [Unknown]
  - Renal impairment [Unknown]
  - Pain [Unknown]
  - Tachycardia [Unknown]
